FAERS Safety Report 8427835-2 (Version None)
Quarter: 2012Q2

REPORT INFORMATION
  Report Type: 
  Country: None (occurrence: None)
  Receive Date: 20120611
  Receipt Date: 20120528
  Transmission Date: 20120825
  Serious: Yes (Hospitalization)
  Sender: FDA-Public Use
  Company Number: US-ELI_LILLY_AND_COMPANY-US201108003452

PATIENT
  Sex: Female

DRUGS (2)
  1. FORTEO [Suspect]
     Dosage: UNK, UNKNOWN
     Route: 065
  2. FORTEO [Suspect]
     Indication: OSTEOPOROSIS
     Dosage: UNK, UNKNOWN

REACTIONS (7)
  - SINUS DISORDER [None]
  - INTENTIONAL DRUG MISUSE [None]
  - HEADACHE [None]
  - HERNIA REPAIR [None]
  - SPINAL CORD DISORDER [None]
  - COELIAC DISEASE [None]
  - PAIN [None]
